FAERS Safety Report 13321227 (Version 3)
Quarter: 2018Q1

REPORT INFORMATION
  Report Type: Report from Study
  Country: IT (occurrence: IT)
  Receive Date: 20170310
  Receipt Date: 20180222
  Transmission Date: 20180508
  Serious: Yes (Hospitalization, Other)
  Sender: FDA-Public Use
  Company Number: IT-MYLANLABS-2017M1014872

PATIENT
  Age: 39 Year
  Sex: Male

DRUGS (3)
  1. DIAZEPAM MYLAN [Suspect]
     Active Substance: DIAZEPAM
     Indication: PRODUCT USED FOR UNKNOWN INDICATION
     Dosage: 125 MG, TOTAL
     Route: 048
     Dates: start: 20161011, end: 20161012
  2. METHADONE HYDROCHLORIDE. [Concomitant]
     Active Substance: METHADONE HYDROCHLORIDE
     Indication: PRODUCT USED FOR UNKNOWN INDICATION
     Dosage: UNK
  3. ETHYL ALCOHOL [Concomitant]
     Active Substance: ALCOHOL
     Indication: PRODUCT USED FOR UNKNOWN INDICATION
     Dosage: UNK

REACTIONS (6)
  - Overdose [Unknown]
  - Loss of consciousness [Unknown]
  - Intentional self-injury [Unknown]
  - Drug abuse [Unknown]
  - Dyspnoea [Unknown]
  - Miosis [Unknown]

NARRATIVE: CASE EVENT DATE: 20161012
